FAERS Safety Report 7717621-0 (Version None)
Quarter: 2011Q3

REPORT INFORMATION
  Report Type: 
  Country: None (occurrence: None)
  Receive Date: 20110830
  Receipt Date: 20110830
  Transmission Date: 20111222
  Serious: Yes (Other)
  Sender: FDA-Public Use
  Company Number: None

PATIENT
  Sex: Female
  Weight: 63.049 kg

DRUGS (1)
  1. LENALIDOMIDE [Suspect]
     Indication: B-CELL LYMPHOMA
     Dosage: 10 MG
     Route: 048
     Dates: start: 20110405, end: 20110726

REACTIONS (1)
  - DIVERTICULITIS [None]
